FAERS Safety Report 19471637 (Version 3)
Quarter: 2023Q4

REPORT INFORMATION
  Report Type: Report from Study
  Country: CA (occurrence: CA)
  Receive Date: 20210629
  Receipt Date: 20231124
  Transmission Date: 20240110
  Serious: Yes (Other)
  Sender: FDA-Public Use
  Company Number: CA-NOVARTISPH-PHHY2019CA078194

PATIENT
  Age: 45 Year
  Sex: Female

DRUGS (1)
  1. GILENYA [Suspect]
     Active Substance: FINGOLIMOD HYDROCHLORIDE
     Indication: Relapsing-remitting multiple sclerosis
     Dosage: UNK
     Route: 048
     Dates: start: 20190329

REACTIONS (7)
  - Ophthalmoplegia [Unknown]
  - Balance disorder [Unknown]
  - Gait disturbance [Unknown]
  - Limb injury [Unknown]
  - Accident [Unknown]
  - Eye movement disorder [Unknown]
  - Nystagmus [Unknown]

NARRATIVE: CASE EVENT DATE: 20190329
